FAERS Safety Report 5145920-8 (Version None)
Quarter: 2006Q4

REPORT INFORMATION
  Report Type: 
  Country: None (occurrence: None)
  Receive Date: 20061102
  Receipt Date: 20061023
  Transmission Date: 20070319
  Serious: Yes (Other)
  Sender: FDA-Public Use
  Company Number: 2006126543

PATIENT
  Age: 45 Year
  Sex: Female
  Weight: 80 kg

DRUGS (5)
  1. LYRICA [Suspect]
     Indication: FIBROMYALGIA
     Dosage: 200 MG (3 IN 1 D), ORAL
     Route: 048
     Dates: start: 20060724, end: 20061011
  2. LYRICA [Suspect]
     Indication: PAIN
     Dosage: 200 MG (3 IN 1 D), ORAL
     Route: 048
     Dates: start: 20060724, end: 20061011
  3. DOSULEPIN (DOSULEPIN) [Concomitant]
  4. DICLOFENAC SODIUM [Concomitant]
  5. BUPRENORPHINE HCL [Concomitant]

REACTIONS (6)
  - BLOOD THYROID STIMULATING HORMONE DECREASED [None]
  - PALPITATIONS [None]
  - SUPRAVENTRICULAR EXTRASYSTOLES [None]
  - TACHYCARDIA [None]
  - THYROXINE FREE INCREASED [None]
  - VENTRICULAR EXTRASYSTOLES [None]
